FAERS Safety Report 12642264 (Version 1)
Quarter: 2016Q3

REPORT INFORMATION
  Report Type: Spontaneous
  Country: US (occurrence: US)
  Receive Date: 20160810
  Receipt Date: 20160810
  Transmission Date: 20161109
  Serious: No
  Sender: FDA-Public Use
  Company Number: US-PFIZER INC-2016372375

PATIENT
  Age: 64 Year
  Sex: Male

DRUGS (1)
  1. ADVIL [Suspect]
     Active Substance: IBUPROFEN
     Indication: ARTHRALGIA
     Dosage: 6 DF, (SIX IN 24 HRS)
     Route: 048

REACTIONS (3)
  - Wheezing [Recovering/Resolving]
  - Asthma [Recovering/Resolving]
  - Reaction to drug excipients [Recovering/Resolving]

NARRATIVE: CASE EVENT DATE: 201607
